FAERS Safety Report 5233679-5 (Version None)
Quarter: 2007Q1

REPORT INFORMATION
  Report Type: 
  Country: None (occurrence: None)
  Receive Date: 20070208
  Receipt Date: 20070205
  Transmission Date: 20070707
  Serious: Yes (Hospitalization, Other)
  Sender: FDA-Public Use
  Company Number: DE-AVENTIS-200710291DE

PATIENT
  Sex: Male

DRUGS (5)
  1. LANTUS [Suspect]
     Dosage: DOSE: NOT REPORTED
     Dates: start: 20000101
  2. LANTUS [Suspect]
     Dosage: DOSE: NOT REPORTED
  3. HUMALOG [Concomitant]
     Dosage: DOSE: NOT REPORTED
     Dates: start: 20000101
  4. HUMALOG [Concomitant]
     Dosage: DOSE: NOT REPORTED
  5. ENALAPRIL MALEATE [Concomitant]
     Indication: HYPERTENSION
     Dosage: DOSE: NOT REPORTED

REACTIONS (1)
  - THROMBOCYTOPENIA [None]
